FAERS Safety Report 15209681 (Version 1)
Quarter: 2018Q3

REPORT INFORMATION
  Report Type: Spontaneous
  Country: US (occurrence: US)
  Receive Date: 20180727
  Receipt Date: 20180727
  Transmission Date: 20181010
  Serious: No
  Sender: FDA-Public Use
  Company Number: US-ASTRAZENECA-2018SE84353

PATIENT
  Age: 42 Year
  Sex: Male
  Weight: 153.3 kg

DRUGS (4)
  1. ALBUTEROL. [Concomitant]
     Active Substance: ALBUTEROL
     Indication: ASTHMA
     Dosage: UNKNOWN
     Route: 055
     Dates: start: 1998
  2. PREDNISONE. [Concomitant]
     Active Substance: PREDNISONE
     Indication: ASTHMA
     Dosage: UNKNOWN
     Route: 048
     Dates: start: 1998
  3. PULMICORT FLEXHALER [Suspect]
     Active Substance: BUDESONIDE
     Indication: ASTHMA
     Dosage: 180UG/INHAL TWO TIMES A DAY
     Route: 055
     Dates: start: 2016
  4. VENTOLIN OR PROAIR [Concomitant]
     Indication: INHALATION THERAPY
     Dosage: 90.0UG/INHAL AS REQUIRED
     Route: 055
     Dates: start: 1998

REACTIONS (6)
  - Respiratory rate increased [Unknown]
  - Drug dose omission [Unknown]
  - Heart rate increased [Unknown]
  - Oxygen saturation abnormal [Recovered/Resolved]
  - Asthma [Unknown]
  - Hypertension [Recovered/Resolved]

NARRATIVE: CASE EVENT DATE: 201805
